FAERS Safety Report 9160503 (Version 2)
Quarter: 2013Q3

REPORT INFORMATION
  Report Type: Spontaneous
  Country: KR (occurrence: None)
  Receive Date: 20130220
  Receipt Date: 20130815
  Transmission Date: 20140515
  Serious: Yes (Hospitalization, Other)
  Sender: FDA-Public Use
  Company Number: JP-2013-10336

PATIENT
  Age: 49 Year
  Sex: Male
  Weight: 56 kg

DRUGS (10)
  1. OPC-13013 [Suspect]
     Indication: CORONARY ARTERY DISEASE
     Route: 048
     Dates: start: 20110128, end: 20110410
  2. OPC-13013 [Suspect]
     Indication: CORONARY ARTERIAL STENT INSERTION
     Route: 048
     Dates: start: 20110128, end: 20110410
  3. ASPIRIN [Suspect]
     Indication: CORONARY ARTERY DISEASE
     Route: 048
     Dates: start: 20100315
  4. ASPIRIN [Suspect]
     Indication: CORONARY ARTERIAL STENT INSERTION
     Route: 048
     Dates: start: 20100315
  5. CLOPIDOGREL [Suspect]
     Indication: CORONARY ARTERY DISEASE
     Route: 048
     Dates: start: 20110128
  6. CLOPIDOGREL [Suspect]
     Indication: CORONARY ARTERIAL STENT INSERTION
     Route: 048
     Dates: start: 20110128
  7. CRESTOR [Concomitant]
  8. HERBEN (DILTIAZEM HYDROCHLORIDE) [Concomitant]
  9. DIABEX (METFORMIN HYDROCHLORIDE) [Concomitant]
  10. VASTINAN MR (TRIMETAZIDINE HYDROCHLORIDE) [Concomitant]

REACTIONS (2)
  - Acute myocardial infarction [None]
  - Coronary artery stenosis [None]
